FAERS Safety Report 9224257 (Version 1)
Quarter: 2013Q2

REPORT INFORMATION
  Report Type: Spontaneous
  Country: US (occurrence: None)
  Receive Date: 20130409
  Receipt Date: 20130409
  Transmission Date: 20140414
  Serious: Yes (Other)
  Sender: FDA-Public Use
  Company Number: None

PATIENT
  Age: 55 Year
  Sex: Female
  Weight: 38.03 kg

DRUGS (6)
  1. ORENCIA [Suspect]
     Indication: RHEUMATOID ARTHRITIS
     Route: 058
     Dates: start: 20130318, end: 20130408
  2. HCTZ [Concomitant]
  3. MEDROL [Concomitant]
  4. ULTRAM [Concomitant]
  5. MULTIVITAMIN [Concomitant]
  6. PRILOSEC [Concomitant]

REACTIONS (2)
  - Palpitations [None]
  - Malaise [None]
